FAERS Safety Report 7786366-3 (Version None)
Quarter: 2011Q3

REPORT INFORMATION
  Report Type: 
  Country: None (occurrence: None)
  Receive Date: 20110929
  Receipt Date: 20110922
  Transmission Date: 20111222
  Serious: Yes (Hospitalization)
  Sender: FDA-Public Use
  Company Number: PHHY2010US55743

PATIENT
  Sex: Female
  Weight: 75.07 kg

DRUGS (1)
  1. EXJADE [Suspect]
     Indication: SICKLE CELL ANAEMIA
     Dosage: 500 MG, TID
     Route: 048
     Dates: start: 20100422, end: 20110826

REACTIONS (10)
  - DIZZINESS [None]
  - BACK PAIN [None]
  - URINARY TRACT INFECTION [None]
  - SICKLE CELL ANAEMIA WITH CRISIS [None]
  - PAIN [None]
  - NAUSEA [None]
  - OXYGEN SATURATION DECREASED [None]
  - LOWER RESPIRATORY TRACT INFECTION [None]
  - ABDOMINAL PAIN [None]
  - SERUM FERRITIN INCREASED [None]
